FAERS Safety Report 21699965 (Version 1)
Quarter: 2022Q4

REPORT INFORMATION
  Report Type: Spontaneous
  Country: US (occurrence: None)
  Receive Date: 20221207
  Receipt Date: 20221207
  Transmission Date: 20230112
  Serious: Yes (Other)
  Sender: FDA-Public Use
  Company Number: None

PATIENT
  Age: 38 Year
  Sex: Female
  Weight: 96.3 kg

DRUGS (3)
  1. MOUNJARO [Suspect]
     Active Substance: TIRZEPATIDE
     Indication: Weight decreased
     Dates: start: 20221009, end: 20221204
  2. CODEINE [Concomitant]
     Active Substance: CODEINE
  3. Tylenol Cough drops [Concomitant]

REACTIONS (8)
  - Adverse reaction [None]
  - Throat irritation [None]
  - Eye pruritus [None]
  - Lacrimation increased [None]
  - Cough [None]
  - Sneezing [None]
  - Nasal pruritus [None]
  - Paranasal sinus hypersecretion [None]

NARRATIVE: CASE EVENT DATE: 20221030
